FAERS Safety Report 5222827-9 (Version None)
Quarter: 2007Q1

REPORT INFORMATION
  Report Type: 
  Country: None (occurrence: None)
  Receive Date: 20070129
  Receipt Date: 20070119
  Transmission Date: 20070707
  Serious: Yes (Hospitalization)
  Sender: FDA-Public Use
  Company Number: FR-GLAXOSMITHKLINE-B0453523A

PATIENT
  Age: 49 Year
  Sex: Male
  Weight: 72 kg

DRUGS (4)
  1. ZYBAN [Suspect]
     Dosage: 150MG VARIABLE DOSE
     Route: 048
     Dates: start: 20061101, end: 20061217
  2. PREVISCAN [Suspect]
     Indication: AORTIC SURGERY
     Dosage: 30MG PER DAY
     Route: 048
     Dates: start: 20050101, end: 20061217
  3. TENORMIN [Concomitant]
     Route: 048
  4. LEXOMIL [Concomitant]
     Route: 048

REACTIONS (10)
  - COORDINATION ABNORMAL [None]
  - DRUG INTERACTION [None]
  - EXTRADURAL HAEMATOMA [None]
  - GAIT DISTURBANCE [None]
  - HYPERREFLEXIA [None]
  - HYPOAESTHESIA [None]
  - NECK PAIN [None]
  - PARAESTHESIA [None]
  - PROTHROMBIN LEVEL DECREASED [None]
  - SPINAL CORD COMPRESSION [None]
